FAERS Safety Report 20067046 (Version 1)
Quarter: 2021Q4

REPORT INFORMATION
  Report Type: Spontaneous
  Country: FR (occurrence: FR)
  Receive Date: 20211115
  Receipt Date: 20211115
  Transmission Date: 20220303
  Serious: Yes (Death)
  Sender: FDA-Public Use
  Company Number: FR-NOVOPROD-864336

PATIENT
  Sex: Female

DRUGS (1)
  1. ISOPHANE INSULIN [Suspect]
     Active Substance: INSULIN NOS
     Indication: Product used for unknown indication
     Dosage: TWO DAILY INJECTIONS: ONE OF 12U IN THE MORNING, ONE IN THE EVENING (UNSPECIFIED DOSE)
     Route: 065

REACTIONS (2)
  - Death [Fatal]
  - Blood glucose decreased [Unknown]
